FAERS Safety Report 11657803 (Version 1)
Quarter: 2015Q4

REPORT INFORMATION
  Report Type: Spontaneous
  Country: US (occurrence: US)
  Receive Date: 20151023
  Receipt Date: 20151023
  Transmission Date: 20160304
  Serious: No
  Sender: FDA-Public Use
  Company Number: US-ABBVIE-14P-163-1321498-00

PATIENT
  Age: 20 Year
  Sex: Female

DRUGS (5)
  1. KALBITOR [Suspect]
     Active Substance: ECALLANTIDE
     Indication: HEREDITARY ANGIOEDEMA
     Route: 058
     Dates: start: 20141109, end: 20141109
  2. PROGESTERONE. [Suspect]
     Active Substance: PROGESTERONE
     Indication: PRODUCT USED FOR UNKNOWN INDICATION
     Route: 065
  3. LUPRON [Suspect]
     Active Substance: LEUPROLIDE ACETATE
     Indication: PRODUCT USED FOR UNKNOWN INDICATION
     Route: 065
  4. KALBITOR [Suspect]
     Active Substance: ECALLANTIDE
     Route: 058
  5. KALBITOR [Suspect]
     Active Substance: ECALLANTIDE
     Route: 058
     Dates: start: 20141101, end: 20141101

REACTIONS (8)
  - Hereditary angioedema [Unknown]
  - Urticaria [Unknown]
  - Feeling abnormal [Unknown]
  - Hereditary angioedema [Unknown]
  - Rash [Unknown]
  - Disturbance in attention [Unknown]
  - Fatigue [Unknown]
  - Limb injury [Recovered/Resolved]

NARRATIVE: CASE EVENT DATE: 20141101
